FAERS Safety Report 7706348-7 (Version None)
Quarter: 2011Q3

REPORT INFORMATION
  Report Type: 
  Country: None (occurrence: None)
  Receive Date: 20110824
  Receipt Date: 20110816
  Transmission Date: 20111222
  Serious: Yes (Hospitalization)
  Sender: FDA-Public Use
  Company Number: CA-JNJFOC-20110512863

PATIENT
  Sex: Male
  Weight: 87.2 kg

DRUGS (7)
  1. REMICADE [Suspect]
     Indication: CROHN'S DISEASE
     Route: 042
     Dates: start: 20110415
  2. IMURAN [Concomitant]
     Route: 048
  3. SCOPOLAMINE [Concomitant]
  4. REMICADE [Suspect]
     Route: 042
     Dates: start: 20090601
  5. VITAMIN B-12 [Concomitant]
  6. ASPIRIN [Concomitant]
     Route: 048
  7. FE SULFATE [Concomitant]

REACTIONS (1)
  - CHOLECYSTITIS [None]
